FAERS Safety Report 16171780 (Version 3)
Quarter: 2019Q2

REPORT INFORMATION
  Report Type: Spontaneous
  Country: DE (occurrence: DE)
  Receive Date: 20190408
  Receipt Date: 20190531
  Transmission Date: 20190711
  Serious: Yes (Hospitalization, Other)
  Sender: FDA-Public Use
  Company Number: DE-UCBSA-2019015102

PATIENT
  Age: 60 Year
  Sex: Male

DRUGS (25)
  1. PERAMPANEL [Suspect]
     Active Substance: PERAMPANEL
     Indication: SEIZURE
     Dosage: MAXIMUM DAILY DOSE OF 8 MG
  2. TOPIRAMATE. [Suspect]
     Active Substance: TOPIRAMATE
     Indication: SEIZURE
     Dosage: UNKNOWN DOSE
  3. BRIVARACETAM [Suspect]
     Active Substance: BRIVARACETAM
     Indication: SEIZURE
     Dosage: MAXIMUM DAILY DOSE OF 150 MG
  4. BRIVARACETAM [Suspect]
     Active Substance: BRIVARACETAM
     Indication: POST-ANOXIC MYOCLONUS
  5. PIRACETAM [Suspect]
     Active Substance: PIRACETAM
     Dosage: 2400 MILLIGRAM PER DAY
  6. LEVETIRACETAM. [Suspect]
     Active Substance: LEVETIRACETAM
     Indication: POST-ANOXIC MYOCLONUS
     Dosage: 500 MILLIGRAM PER DAY
  7. PIRACETAM [Suspect]
     Active Substance: PIRACETAM
     Indication: POST-ANOXIC MYOCLONUS
     Dosage: MAXIMUM DAILY DOSE OF 2400 MG
  8. DRONABINOL. [Suspect]
     Active Substance: DRONABINOL
     Dosage: 20 DROPS/D (EQUIVALENT TO 17.5 MG/D)
     Route: 065
  9. ESLICARBAZEPINE [Suspect]
     Active Substance: ESLICARBAZEPINE
     Indication: POST-ANOXIC MYOCLONUS
  10. LAMOTRIGINE. [Suspect]
     Active Substance: LAMOTRIGINE
     Indication: SEIZURE
     Dosage: UNKNOWN DOSE
  11. PREGABALIN. [Suspect]
     Active Substance: PREGABALIN
     Indication: SEIZURE
     Dosage: UNKNOWN DOSE
  12. PREGABALIN. [Suspect]
     Active Substance: PREGABALIN
     Indication: POST-ANOXIC MYOCLONUS
  13. ZONISAMIDE. [Suspect]
     Active Substance: ZONISAMIDE
     Indication: POST-ANOXIC MYOCLONUS
  14. LEVETIRACETAM. [Suspect]
     Active Substance: LEVETIRACETAM
     Indication: SEIZURE
     Dosage: MAXIMUM DAILY DOSE OF 1500 MG
  15. PERAMPANEL [Suspect]
     Active Substance: PERAMPANEL
     Indication: POST-ANOXIC MYOCLONUS
     Dosage: 2 MG/D OR 4 MG/D ON ALTERNATE DAYS
  16. TOPIRAMATE. [Suspect]
     Active Substance: TOPIRAMATE
     Indication: POST-ANOXIC MYOCLONUS
  17. GABAPENTIN. [Concomitant]
     Active Substance: GABAPENTIN
     Indication: MYOCLONIC EPILEPSY
     Dosage: UNKNOWN DOSE
  18. CLONAZEPAM. [Suspect]
     Active Substance: CLONAZEPAM
     Indication: POST-ANOXIC MYOCLONUS
     Dosage: 2 MILLIGRAM PER DAY
  19. DRONABINOL. [Suspect]
     Active Substance: DRONABINOL
     Indication: SEIZURE
     Dosage: UP TO 30 DROPS/D, EQUIVALENT TO 26.3 MG/D
  20. CANNABIDIOL [Concomitant]
     Active Substance: CANNABIDIOL
     Indication: PRODUCT USED FOR UNKNOWN INDICATION
     Dosage: WHICH WAS INCREASED OVER FOUR DAYS TO 750 MG DAILY CORRESPONDING TO 12.5 MG KG OF BODYWEIGHT PER DAY
  21. CLONAZEPAM. [Suspect]
     Active Substance: CLONAZEPAM
     Indication: MYOCLONIC EPILEPSY
     Dosage: UPTO 1.5 MG/DAY
  22. GABAPENTIN. [Concomitant]
     Active Substance: GABAPENTIN
     Indication: POST-ANOXIC MYOCLONUS
  23. ESLICARBAZEPINE [Suspect]
     Active Substance: ESLICARBAZEPINE
     Indication: SEIZURE
     Dosage: UNKNOWN DOSE
  24. LAMOTRIGINE. [Suspect]
     Active Substance: LAMOTRIGINE
     Indication: POST-ANOXIC MYOCLONUS
  25. ZONISAMIDE. [Suspect]
     Active Substance: ZONISAMIDE
     Indication: SEIZURE
     Dosage: UNKNOWN DOSE

REACTIONS (7)
  - Quadriparesis [Unknown]
  - Dysarthria [Unknown]
  - Cerebellar ataxia [Unknown]
  - Facial paresis [Unknown]
  - Dystonia [Unknown]
  - Myoclonus [Recovering/Resolving]
  - Multiple-drug resistance [Unknown]
